FAERS Safety Report 19633904 (Version 1)
Quarter: 2021Q3

REPORT INFORMATION
  Report Type: Spontaneous
  Country: NO (occurrence: NO)
  Receive Date: 20210729
  Receipt Date: 20210729
  Transmission Date: 20211014
  Serious: Yes (Hospitalization, Disabling)
  Sender: FDA-Public Use
  Company Number: NO-PFIZER INC-2021895792

PATIENT
  Age: 45 Year
  Sex: Male
  Weight: 112 kg

DRUGS (1)
  1. NEURONTIN [Suspect]
     Active Substance: GABAPENTIN
     Indication: NEURALGIA
     Dosage: 300 MG, 3X/DAY
     Route: 048
     Dates: start: 202008, end: 202104

REACTIONS (2)
  - Mental impairment [Recovered/Resolved with Sequelae]
  - Agitation [Unknown]

NARRATIVE: CASE EVENT DATE: 202008
